FAERS Safety Report 6119499-8 (Version None)
Quarter: 2009Q1

REPORT INFORMATION
  Report Type: 
  Country: None (occurrence: None)
  Receive Date: 20090316
  Receipt Date: 20090306
  Transmission Date: 20090719
  Serious: Yes (Hospitalization, Disabling)
  Sender: FDA-Public Use
  Company Number: A0773180A

PATIENT
  Age: 57 Year
  Sex: Male
  Weight: 72.7 kg

DRUGS (4)
  1. AVANDIA [Suspect]
     Indication: DIABETES MELLITUS
     Dosage: 4MG TWICE PER DAY
     Route: 048
     Dates: start: 19980101, end: 20050101
  2. INSULIN [Concomitant]
  3. FAMOTIDINE [Concomitant]
  4. PRANDIN [Concomitant]

REACTIONS (1)
  - MYOCARDIAL INFARCTION [None]
